FAERS Safety Report 22098486 (Version 2)
Quarter: 2023Q1

REPORT INFORMATION
  Report Type: Spontaneous
  Country: US (occurrence: US)
  Receive Date: 20230315
  Receipt Date: 20230315
  Transmission Date: 20230417
  Serious: No
  Sender: FDA-Public Use
  Company Number: US-Dermavant-000424

PATIENT
  Age: 30 Year
  Sex: Female

DRUGS (1)
  1. TAPINAROF [Suspect]
     Active Substance: TAPINAROF
     Indication: Psoriasis
     Dosage: AREA OF APPLICATION: NEAR HAIRLINE, FACIAL PSORIASIS, NECK, SHOULDERS, EARS
     Route: 061
     Dates: start: 202301, end: 202301

REACTIONS (6)
  - Dermatitis exfoliative generalised [Recovering/Resolving]
  - Rash [Recovering/Resolving]
  - Skin exfoliation [Recovering/Resolving]
  - Psoriasis [Recovering/Resolving]
  - Pruritus [Recovering/Resolving]
  - Erythema [Recovering/Resolving]

NARRATIVE: CASE EVENT DATE: 20230101
